FAERS Safety Report 8986472 (Version 4)
Quarter: 2013Q1

REPORT INFORMATION
  Report Type: Spontaneous
  Country: US (occurrence: US)
  Receive Date: 20121226
  Receipt Date: 20130304
  Transmission Date: 20140127
  Serious: Yes (Other)
  Sender: FDA-Public Use
  Company Number: PHEH2012US025266

PATIENT
  Age: 29 Year
  Sex: Female
  Weight: 122.9 kg

DRUGS (6)
  1. GILENYA [Suspect]
     Indication: MULTIPLE SCLEROSIS
     Dosage: 0.5 MG, QD
     Route: 048
     Dates: start: 201208, end: 20121226
  2. CYMBALTA [Concomitant]
     Dosage: 60 MG, QD
  3. GABAPENTIN [Concomitant]
     Dosage: 300 MG, BID
  4. FOLIC ACID [Concomitant]
     Dosage: 1 MG, QD
  5. NEXUM [Concomitant]
     Dosage: 40 MG, QD
  6. TRAZODONE [Concomitant]
     Dosage: 150 MG, AT BEDTIME

REACTIONS (16)
  - Optic neuritis [Unknown]
  - Optic atrophy [Unknown]
  - Central nervous system lesion [Unknown]
  - Vision blurred [Unknown]
  - Eye pain [Recovering/Resolving]
  - Colour blindness [Unknown]
  - Blindness unilateral [Recovering/Resolving]
  - Discomfort [Unknown]
  - Pain [Unknown]
  - Heart rate increased [Unknown]
  - Feeling abnormal [Not Recovered/Not Resolved]
  - Fatigue [Unknown]
  - Nausea [Not Recovered/Not Resolved]
  - Depression [Unknown]
  - Nasopharyngitis [Unknown]
  - Dizziness [Not Recovered/Not Resolved]
